FAERS Safety Report 8007958-2 (Version None)
Quarter: 2011Q4

REPORT INFORMATION
  Report Type: 
  Country: None (occurrence: None)
  Receive Date: 20111227
  Receipt Date: 20111212
  Transmission Date: 20120403
  Serious: Yes (Other)
  Sender: FDA-Public Use
  Company Number: PHFR2011GB06055

PATIENT
  Sex: Male

DRUGS (9)
  1. BISOPROLOL FUMARATE [Concomitant]
     Dosage: UNK
     Route: 048
  2. CLOZARIL [Suspect]
     Indication: SCHIZOPHRENIA
  3. OLANZAPINE [Concomitant]
     Dosage: 7.5 MG, UNK
  4. HALDOL [Concomitant]
     Dosage: 150 MG, UNK
     Route: 030
  5. LITHIUM CARBONATE [Concomitant]
     Dosage: 1000 MG, UNK
     Route: 048
  6. ATORVASTATIN [Concomitant]
     Dosage: UNK
     Route: 048
  7. ARIPIPRAZOLE [Concomitant]
     Dosage: 15 MG, UNK
     Route: 048
  8. METFORMIN [Concomitant]
     Dosage: UNK
     Route: 048
  9. VALPROATE SODIUM [Concomitant]
     Dosage: 1000 MG, BID
     Route: 048

REACTIONS (2)
  - METABOLIC SYNDROME [None]
  - ANTIPSYCHOTIC DRUG LEVEL BELOW THERAPEUTIC [None]
